FAERS Safety Report 24173352 (Version 1)
Quarter: 2024Q3

REPORT INFORMATION
  Report Type: Report from Study
  Country: US (occurrence: US)
  Receive Date: 20240805
  Receipt Date: 20240805
  Transmission Date: 20241017
  Serious: Yes (Hospitalization)
  Sender: ACADIA PHARMACEUTICALS
  Company Number: US-ACADIA PHARMACEUTICALS INC.-ACA-2024-PIM-003517

PATIENT
  Age: 86 Year
  Sex: Male

DRUGS (6)
  1. NUPLAZID [Suspect]
     Active Substance: PIMAVANSERIN TARTRATE
     Indication: Parkinson^s disease
     Dosage: 34 MILLIGRAM, QD
     Route: 048
     Dates: start: 20230629
  2. BACLOFEN [Concomitant]
     Active Substance: BACLOFEN
     Dosage: 10 MILLIGRAM
  3. CARBIDOPA\LEVODOPA [Concomitant]
     Active Substance: CARBIDOPA\LEVODOPA
     Dosage: 25-100 MILLIGRAM CR
  4. GEMTESA [Concomitant]
     Active Substance: VIBEGRON
     Dosage: 75 MILLIGRAM
  5. MEMANTINE [Concomitant]
     Active Substance: MEMANTINE
     Dosage: 14 MILLIGRAM
  6. SEROQUEL [Concomitant]
     Active Substance: QUETIAPINE FUMARATE
     Dosage: 25 MILLIGRAM

REACTIONS (9)
  - Disorientation [Recovered/Resolved]
  - Tremor [Recovered/Resolved]
  - Condition aggravated [Recovered/Resolved]
  - Blood pressure increased [Recovered/Resolved]
  - Gait inability [Recovered/Resolved]
  - Confusional state [Recovered/Resolved]
  - Speech-language therapy [Unknown]
  - Occupational therapy [Unknown]
  - Physiotherapy [Unknown]

NARRATIVE: CASE EVENT DATE: 20240626
